FAERS Safety Report 7693762-1 (Version None)
Quarter: 2011Q3

REPORT INFORMATION
  Report Type: 
  Country: None (occurrence: None)
  Receive Date: 20110819
  Receipt Date: 20110810
  Transmission Date: 20111222
  Serious: Yes (Hospitalization)
  Sender: FDA-Public Use
  Company Number: US-JNJFOC-20110403100

PATIENT
  Sex: Male
  Weight: 78.93 kg

DRUGS (4)
  1. PALIPERIDONE [Suspect]
     Indication: SCHIZOPHRENIA
     Route: 030
  2. RISPERDAL [Suspect]
     Indication: SCHIZOPHRENIA
     Route: 048
     Dates: start: 20110327
  3. RISPERDAL [Suspect]
     Route: 048
     Dates: start: 20060101, end: 20110327
  4. PALIPERIDONE [Suspect]
     Route: 030

REACTIONS (1)
  - SCHIZOPHRENIA [None]
